FAERS Safety Report 21311192 (Version 1)
Quarter: 2022Q3

REPORT INFORMATION
  Report Type: Spontaneous
  Country: US (occurrence: US)
  Receive Date: 20220909
  Receipt Date: 20220909
  Transmission Date: 20221026
  Serious: No
  Sender: FDA-Public Use
  Company Number: US-ARIS GLOBAL-202202-0183

PATIENT
  Age: 68 Year
  Sex: Male
  Weight: 57 kg

DRUGS (12)
  1. OXERVATE [Suspect]
     Active Substance: CENEGERMIN-BKBJ
     Indication: Ulcerative keratitis
     Route: 047
     Dates: start: 20220128, end: 20220225
  2. OXERVATE [Suspect]
     Active Substance: CENEGERMIN-BKBJ
     Indication: Ulcerative keratitis
  3. BROMFENAC SODIUM [Concomitant]
     Active Substance: BROMFENAC SODIUM
  4. MOXIFLOXACIN [Concomitant]
     Active Substance: MOXIFLOXACIN
     Indication: Eye infection
     Dates: start: 20220127, end: 20220324
  5. FISH OIL [Concomitant]
     Active Substance: FISH OIL
  6. LOTEMAX [Concomitant]
     Active Substance: LOTEPREDNOL ETABONATE
  7. TIMOLOL MALEATE [Concomitant]
     Active Substance: TIMOLOL MALEATE
  8. CARBOXYMETHYLCELLULOSE [Concomitant]
     Active Substance: CARBOXYMETHYLCELLULOSE
  9. PROSTATE NATURAL SUPPLEMENT [Concomitant]
  10. OMEGA 3 [Concomitant]
     Active Substance: CAPSAICIN
  11. DIETARY SUPPLEMENT [Concomitant]
     Active Substance: DIETARY SUPPLEMENT
  12. ARTIFICIAL TEARS [Concomitant]
     Active Substance: GLYCERIN\HYPROMELLOSES\POLYETHYLENE GLYCOL 400
     Dates: start: 20211115

REACTIONS (8)
  - Eye pain [Not Recovered/Not Resolved]
  - Lacrimation increased [Not Recovered/Not Resolved]
  - Device use issue [Not Recovered/Not Resolved]
  - Abnormal sensation in eye [Unknown]
  - Accidental overdose [Not Recovered/Not Resolved]
  - Disease progression [Recovered/Resolved]
  - Drug ineffective [Unknown]
  - Eye irritation [Recovered/Resolved]

NARRATIVE: CASE EVENT DATE: 20220130
